FAERS Safety Report 6237354-X (Version None)
Quarter: 2009Q2

REPORT INFORMATION
  Report Type: 
  Country: None (occurrence: None)
  Receive Date: 20090619
  Receipt Date: 20090616
  Transmission Date: 20091009
  Serious: Yes (Death, Hospitalization, Other)
  Sender: FDA-Public Use
  Company Number: PHHY2009BR23938

PATIENT
  Sex: Female

DRUGS (5)
  1. DIOVAN [Suspect]
     Indication: BLOOD PRESSURE MANAGEMENT
     Dosage: 80 MG, QD
     Route: 048
  2. OSTEOFORM [Concomitant]
     Indication: OSTEOPOROSIS
  3. CALCIO [Concomitant]
     Indication: OSTEOPOROSIS
  4. VITAMIN D [Concomitant]
     Indication: OSTEOPOROSIS
  5. OMEPRAZOLE [Concomitant]

REACTIONS (7)
  - DEATH [None]
  - IMMOBILE [None]
  - INFECTION [None]
  - LUNG DISORDER [None]
  - MULTIPLE FRACTURES [None]
  - PATHOLOGICAL FRACTURE [None]
  - SURGERY [None]
